FAERS Safety Report 7570034-7 (Version None)
Quarter: 2011Q2

REPORT INFORMATION
  Report Type: 
  Country: None (occurrence: None)
  Receive Date: 20110620
  Receipt Date: 20110615
  Transmission Date: 20111010
  Serious: Yes (Death)
  Sender: FDA-Public Use
  Company Number: NPIL/SEV/H/2011/23

PATIENT
  Age: 36 Year
  Sex: Male

DRUGS (1)
  1. SEVOFLURANE [Suspect]
     Route: 055

REACTIONS (1)
  - DEATH [None]
